FAERS Safety Report 16564367 (Version 6)
Quarter: 2020Q3

REPORT INFORMATION
  Report Type: Report from Study
  Country: CZ (occurrence: CZ)
  Receive Date: 20190712
  Receipt Date: 20200203
  Transmission Date: 20201104
  Serious: Yes (Hospitalization)
  Sender: FDA-Public Use
  Company Number: CZ-ROCHE-2352124

PATIENT
  Age: 62 Year
  Sex: Female
  Weight: 76.9 kg

DRUGS (32)
  1. RITUXIMAB. [Suspect]
     Active Substance: RITUXIMAB
     Indication: DIFFUSE LARGE B-CELL LYMPHOMA
     Dosage: 375 MILLIGRAMS PER SQUARE METER (MG/M^2) IV,?DATE OF MOST RECENT DOSE OF RITUXIMAB (712 MG) PRIOR TO
     Route: 042
     Dates: start: 20190228
  2. SANVAL [Concomitant]
     Active Substance: ZOLPIDEM TARTRATE
     Route: 048
  3. NIMESIL [Concomitant]
     Active Substance: NIMESULIDE
     Route: 048
     Dates: start: 20190402
  4. KYTRIL [Concomitant]
     Active Substance: GRANISETRON HYDROCHLORIDE
     Route: 042
     Dates: start: 20190618, end: 20190618
  5. KALNORMIN [Concomitant]
     Active Substance: POTASSIUM CHLORIDE
     Indication: HYPOKALAEMIA
     Route: 048
     Dates: start: 20190528, end: 20190706
  6. POLATUZUMAB VEDOTIN. [Suspect]
     Active Substance: POLATUZUMAB VEDOTIN
     Indication: DIFFUSE LARGE B-CELL LYMPHOMA
     Dosage: DATE OF MOST RECENT DOSE OF POLATUZUMAB VEDOTIN PRIOR TO SAE ONSET WAS ON 18/JUN/2019 (148 MG)
     Route: 042
     Dates: start: 20190228
  7. DOXORUBICIN [Suspect]
     Active Substance: DOXORUBICIN
     Indication: DIFFUSE LARGE B-CELL LYMPHOMA
     Dosage: 50 MG/M^2 IV ON DAY 1?DATE OF MOST RECENT DOSE OF DOXORUBICIN (95 MG) PRIOR TO SAE ONSET WAS ON 18/J
     Route: 042
     Dates: start: 20190228
  8. CYCLOPHOSPHAMIDE. [Suspect]
     Active Substance: CYCLOPHOSPHAMIDE
     Indication: DIFFUSE LARGE B-CELL LYMPHOMA
     Dosage: 750 MG/M^2 IV, ?DATE OF MOST RECENT DOSE OF CYCLOPHOSPHAMIDE (1425 MG) PRIOR TO SAE ONSET WAS ON 18
     Route: 042
     Dates: start: 20190228
  9. OMEPRAZOLUM [Concomitant]
     Route: 048
     Dates: start: 20190219
  10. ASENTRA [Concomitant]
     Active Substance: SERTRALINE HYDROCHLORIDE
     Indication: DEPRESSION
     Route: 048
  11. NOVALGIN (METAMIZOLE SODIUM) [Concomitant]
     Active Substance: METAMIZOLE SODIUM
     Route: 048
     Dates: start: 20190303
  12. KALNORMIN [Concomitant]
     Active Substance: POTASSIUM CHLORIDE
     Route: 042
     Dates: start: 20190716, end: 20190716
  13. NEUROL [ALPRAZOLAM] [Concomitant]
     Route: 048
     Dates: start: 20190716
  14. BETAXOLOL. [Concomitant]
     Active Substance: BETAXOLOL
     Indication: HYPERTENSION
     Route: 048
     Dates: start: 20190224
  15. COTRIMOXAZOL AL [Concomitant]
     Active Substance: SULFAMETHOXAZOLE\TRIMETHOPRIM
     Route: 048
     Dates: start: 20190225
  16. PREDNISONE. [Suspect]
     Active Substance: PREDNISONE
     Indication: DIFFUSE LARGE B-CELL LYMPHOMA
     Dosage: 100 MILLIGRAMS PER DAY (MG/DAY) ORALLY (PO) ON DAYS 1?5 OF EVERY 21?DAY CYCLE FOR 6 CYCLES. DATE OF
     Route: 048
     Dates: start: 20190228
  17. TRITTICO [Concomitant]
     Active Substance: TRAZODONE HYDROCHLORIDE
     Indication: DEPRESSION
     Route: 048
  18. NEUROL [ALPRAZOLAM] [Concomitant]
     Indication: INSOMNIA
     Route: 048
     Dates: start: 20190220, end: 20190706
  19. DITHIADEN [Concomitant]
     Active Substance: BISULEPIN
     Dosage: AMPULE
     Route: 042
     Dates: start: 20190716, end: 20190716
  20. TEZEO [Concomitant]
     Active Substance: TELMISARTAN
     Indication: HYPERTENSION
     Route: 048
     Dates: start: 20190222
  21. ZARZIO [Concomitant]
     Active Substance: FILGRASTIM
     Route: 058
     Dates: start: 20190602, end: 20190608
  22. PARACETAMOL [Concomitant]
     Active Substance: ACETAMINOPHEN
     Route: 048
     Dates: start: 20190716, end: 20190716
  23. KALNORMIN [Concomitant]
     Active Substance: POTASSIUM CHLORIDE
     Route: 042
     Dates: start: 20190718, end: 20190806
  24. FRAXIPARIN [Concomitant]
     Active Substance: NADROPARIN CALCIUM
     Route: 058
     Dates: start: 20190228, end: 20190723
  25. BISULEPIN HYDROCHLORIDE [Concomitant]
     Active Substance: BISULEPIN HYDROCHLORIDE
     Route: 042
     Dates: start: 20190618, end: 20190618
  26. XANAX [Concomitant]
     Active Substance: ALPRAZOLAM
     Indication: DEPRESSION
     Route: 048
     Dates: start: 20190712, end: 20190712
  27. MILURIT [Concomitant]
     Active Substance: ALLOPURINOL
     Route: 048
     Dates: start: 20190219, end: 20190706
  28. PLACEBO [Suspect]
     Active Substance: UNSPECIFIED INGREDIENT
     Indication: DIFFUSE LARGE B-CELL LYMPHOMA
     Dosage: DATE OF MOST RECENT DOSE PRIOR TO SAE ONSET WAS ON 18/JUN/2019.
     Route: 042
     Dates: start: 20190228
  29. NADROPARINUM CALCICUM [Concomitant]
     Route: 058
     Dates: start: 20190228
  30. GRANEGIS [Concomitant]
     Active Substance: GRANISETRON HYDROCHLORIDE
     Route: 048
     Dates: start: 20190303
  31. ZARZIO [Concomitant]
     Active Substance: FILGRASTIM
     Route: 058
     Dates: start: 20190623, end: 20190629
  32. PARACETAMOL [Concomitant]
     Active Substance: ACETAMINOPHEN
     Route: 048
     Dates: start: 20190618, end: 20190618

REACTIONS (2)
  - Bacteraemia [Recovered/Resolved]
  - Pneumonia [Recovered/Resolved]

NARRATIVE: CASE EVENT DATE: 20190706
